FAERS Safety Report 23273043 (Version 1)
Quarter: 2023Q4

REPORT INFORMATION
  Report Type: Report from Study
  Country: IL (occurrence: IL)
  Receive Date: 20231207
  Receipt Date: 20231207
  Transmission Date: 20240109
  Serious: Yes (Hospitalization)
  Sender: FDA-Public Use
  Company Number: IL-TAKEDA-2023TUS117150

PATIENT
  Age: 62 Year
  Sex: Male

DRUGS (1)
  1. VELAGLUCERASE ALFA [Suspect]
     Active Substance: VELAGLUCERASE ALFA
     Indication: Product used for unknown indication
     Dosage: 11 DOSAGE FORM, Q2WEEKS
     Route: 065

REACTIONS (2)
  - Inguinal hernia [Unknown]
  - Procedural pain [Unknown]
